FAERS Safety Report 8531296 (Version 2)
Quarter: 2013Q1

REPORT INFORMATION
  Report Type: Report from Study
  Country: IT (occurrence: IT)
  Receive Date: 20120426
  Receipt Date: 20130215
  Transmission Date: 20140127
  Serious: Yes (Hospitalization)
  Sender: FDA-Public Use
  Company Number: PHHO2012IT006399

PATIENT
  Age: 34 Year
  Sex: Male
  Weight: 52 kg

DRUGS (1)
  1. AMN107 [Suspect]
     Indication: CHRONIC MYELOID LEUKAEMIA
     Dosage: 450 MG, BID
     Route: 048
     Dates: start: 20100917

REACTIONS (1)
  - Hepatic fibrosis [Recovered/Resolved]
